FAERS Safety Report 22044445 (Version 2)
Quarter: 2023Q1

REPORT INFORMATION
  Report Type: Report from Study
  Country: CN (occurrence: None)
  Receive Date: 20230228
  Receipt Date: 20230313
  Transmission Date: 20230417
  Serious: Yes (Hospitalization)
  Sender: FDA-Public Use
  Company Number: CN-ROCHE-3291512

PATIENT
  Age: 71 Year
  Sex: Female
  Weight: 48 kg

DRUGS (15)
  1. PERTUZUMAB [Suspect]
     Active Substance: PERTUZUMAB
     Indication: Breast cancer metastatic
     Dosage: 420 MG FOR FIRST DOSE, 840 MG FOR THE SUBSEQUENT DOSE.
     Route: 041
     Dates: start: 20220608
  2. ALANYL GLUTAMINE [Concomitant]
     Active Substance: ALANYL GLUTAMINE
     Route: 041
     Dates: start: 20230209, end: 20230216
  3. POTASSIUM CHLORIDE [Concomitant]
     Active Substance: POTASSIUM CHLORIDE
     Route: 041
     Dates: start: 20230209, end: 20230215
  4. POTASSIUM CHLORIDE [Concomitant]
     Active Substance: POTASSIUM CHLORIDE
     Route: 041
     Dates: start: 20230216
  5. INSULIN NOS [Concomitant]
     Active Substance: INSULIN NOS
     Indication: Hyperglycaemia
     Dosage: 4 U
     Route: 041
     Dates: start: 20230209, end: 20230216
  6. DEXTROSE [Concomitant]
     Active Substance: DEXTROSE
     Route: 041
     Dates: start: 20230209, end: 20230216
  7. ROXATIDINE ACETATE HYDROCHLORIDE [Concomitant]
     Active Substance: ROXATIDINE ACETATE HYDROCHLORIDE
     Route: 041
     Dates: start: 20230210
  8. ROXATIDINE ACETATE HYDROCHLORIDE [Concomitant]
     Active Substance: ROXATIDINE ACETATE HYDROCHLORIDE
     Route: 041
     Dates: start: 20230217
  9. DIMETHICONE [Concomitant]
     Active Substance: DIMETHICONE
     Route: 048
     Dates: start: 20230215
  10. DYCLONINE HYDROCHLORIDE [Concomitant]
     Active Substance: DYCLONINE HYDROCHLORIDE
     Route: 048
     Dates: start: 20230215
  11. PROTEASE [Concomitant]
     Active Substance: PROTEASE
     Dosage: 20000 IU
     Route: 048
     Dates: start: 20230215
  12. AMINOCAPROIC ACID AND SODIUM CHLORIDE [Concomitant]
     Route: 041
     Dates: start: 20230215, end: 20230216
  13. TRANEXAMIC ACID [Concomitant]
     Active Substance: TRANEXAMIC ACID
     Route: 041
     Dates: start: 20230215, end: 20230216
  14. POLAPREZINC [Concomitant]
     Active Substance: POLAPREZINC
     Route: 048
     Dates: start: 20230215, end: 20230219
  15. METOCLOPRAMIDE HYDROCHLORIDE [Concomitant]
     Active Substance: METOCLOPRAMIDE HYDROCHLORIDE
     Route: 030
     Dates: start: 20230215

REACTIONS (1)
  - Oesophageal stenosis [Recovered/Resolved]

NARRATIVE: CASE EVENT DATE: 20230209
